FAERS Safety Report 7610992-5 (Version None)
Quarter: 2011Q3

REPORT INFORMATION
  Report Type: 
  Country: None (occurrence: None)
  Receive Date: 20110707
  Receipt Date: 20110627
  Transmission Date: 20111222
  Serious: Yes (Hospitalization)
  Sender: FDA-Public Use
  Company Number: 2011-IT-0017

PATIENT
  Sex: Female

DRUGS (1)
  1. GLYCERYL TRINITRATE (UNKNOWN) (GLYCERYL TRINITRATE (UNKNOWN)): FORMULA [Suspect]
     Indication: PRODUCT USED FOR UNKNOWN INDICATION

REACTIONS (3)
  - TACHYCARDIA [None]
  - IATROGENIC INJURY [None]
  - HYPOTENSION [None]
